FAERS Safety Report 7998825-9 (Version None)
Quarter: 2011Q4

REPORT INFORMATION
  Report Type: 
  Country: None (occurrence: None)
  Receive Date: 20111221
  Receipt Date: 20111219
  Transmission Date: 20120403
  Serious: Yes (Hospitalization)
  Sender: FDA-Public Use
  Company Number: US-GLAXOSMITHKLINE-A0919463A

PATIENT
  Sex: Male

DRUGS (1)
  1. VOTRIENT [Suspect]
     Indication: RENAL CANCER
     Dosage: 400MG TWICE PER DAY
     Route: 048

REACTIONS (8)
  - SEPSIS [None]
  - SKIN DEPIGMENTATION [None]
  - HYPERTENSION [None]
  - INAPPROPRIATE SCHEDULE OF DRUG ADMINISTRATION [None]
  - DIARRHOEA [None]
  - ALOPECIA [None]
  - DEVICE RELATED INFECTION [None]
  - BLOOD IRON INCREASED [None]
